FAERS Safety Report 19814202 (Version 1)
Quarter: 2021Q3

REPORT INFORMATION
  Report Type: Report from Study
  Country: US (occurrence: US)
  Receive Date: 20210909
  Receipt Date: 20210909
  Transmission Date: 20211014
  Serious: Yes (Death, Life-Threatening, Other)
  Sender: FDA-Public Use
  Company Number: US-BRISTOL-MYERS SQUIBB COMPANY-BMS-2021-090436

PATIENT
  Age: 49 Year
  Sex: Male
  Weight: 93.4 kg

DRUGS (3)
  1. NIVOLUMAB [Suspect]
     Active Substance: NIVOLUMAB
     Indication: OESOPHAGEAL ADENOCARCINOMA
     Dosage: Q4WEEKS
     Route: 042
     Dates: start: 20210723
  2. RUCAPARIB [Suspect]
     Active Substance: RUCAPARIB
     Indication: OESOPHAGEAL ADENOCARCINOMA
     Dosage: BID
     Route: 048
     Dates: start: 20210723
  3. RAMUCIRUMAB [Suspect]
     Active Substance: RAMUCIRUMAB
     Indication: OESOPHAGEAL ADENOCARCINOMA
     Dosage: Q2WEEKS
     Route: 042

REACTIONS (2)
  - Aspiration [Fatal]
  - Haematemesis [Unknown]

NARRATIVE: CASE EVENT DATE: 20210902
